FAERS Safety Report 9165980 (Version 1)
Quarter: 2013Q1

REPORT INFORMATION
  Report Type: Spontaneous
  Country: US (occurrence: US)
  Receive Date: 20130315
  Receipt Date: 20130315
  Transmission Date: 20140127
  Serious: Yes (Other)
  Sender: FDA-Public Use
  Company Number: US-BAYER-2013-029482

PATIENT
  Sex: Female

DRUGS (2)
  1. MIRENA [Suspect]
     Dosage: UNK
     Dates: start: 2003
  2. MIRENA [Suspect]

REACTIONS (3)
  - Weight decreased [None]
  - Fall [None]
  - Fractured coccyx [Recovering/Resolving]
